FAERS Safety Report 12896323 (Version 1)
Quarter: 2016Q4

REPORT INFORMATION
  Report Type: Spontaneous
  Country: US (occurrence: US)
  Receive Date: 20161031
  Receipt Date: 20161031
  Transmission Date: 20170207
  Serious: No
  Sender: FDA-Public Use
  Company Number: US-JAZZ-2016-US-016430

PATIENT
  Sex: Female

DRUGS (62)
  1. XYREM [Suspect]
     Active Substance: SODIUM OXYBATE
     Dosage: 4.5 G, BID
     Route: 048
     Dates: start: 201510
  2. L-METHYLFOLATE CALCIUM [Concomitant]
     Active Substance: LEVOMEFOLATE CALCIUM
  3. EPINEPHRINE. [Concomitant]
     Active Substance: EPINEPHRINE
  4. GLUCOSAMINE CHONDROITIN MSM COMPLEX [Concomitant]
  5. METROCREAM [Concomitant]
     Active Substance: METRONIDAZOLE
  6. VITAMIN B12 [Concomitant]
     Active Substance: CYANOCOBALAMIN
  7. IMODIUM A-D [Concomitant]
     Active Substance: LOPERAMIDE HYDROCHLORIDE
  8. MULTIPLE VITAMINS [Concomitant]
     Active Substance: VITAMINS
  9. OMNARIS [Concomitant]
     Active Substance: CICLESONIDE
  10. PRILOSEC [Concomitant]
     Active Substance: OMEPRAZOLE MAGNESIUM
  11. KETOCONAZOLE. [Concomitant]
     Active Substance: KETOCONAZOLE
  12. SYMBICORT [Concomitant]
     Active Substance: BUDESONIDE\FORMOTEROL FUMARATE DIHYDRATE
  13. GABAPENTIN. [Concomitant]
     Active Substance: GABAPENTIN
  14. ADVAIR HFA [Concomitant]
     Active Substance: FLUTICASONE PROPIONATE\SALMETEROL XINAFOATE
  15. AZELASTINE [Concomitant]
     Active Substance: AZELASTINE
  16. DEXTROAMPHETAMINE. [Concomitant]
     Active Substance: DEXTROAMPHETAMINE
  17. GOLYTELY [Concomitant]
     Active Substance: POLYETHYLENE GLYCOL 3350\POTASSIUM CHLORIDE\SODIUM BICARBONATE\SODIUM CHLORIDE\SODIUM SULFATE ANHYDROUS
  18. STRATTERA [Concomitant]
     Active Substance: ATOMOXETINE HYDROCHLORIDE
  19. HYOSCYAMINE. [Concomitant]
     Active Substance: HYOSCYAMINE
  20. GUAIFENESIN. [Concomitant]
     Active Substance: GUAIFENESIN
  21. DEXEDRINE [Concomitant]
     Active Substance: DEXTROAMPHETAMINE SULFATE
  22. FLEXERIL [Concomitant]
     Active Substance: CYCLOBENZAPRINE HYDROCHLORIDE
  23. FOCALIN [Concomitant]
     Active Substance: DEXMETHYLPHENIDATE HYDROCHLORIDE
  24. OMEGA 3 FISH OIL [Concomitant]
     Active Substance: FISH OIL\OMEGA-3 FATTY ACIDS
  25. CYCLOBENZAPRINE [Concomitant]
     Active Substance: CYCLOBENZAPRINE
  26. ASTEPRO [Concomitant]
     Active Substance: AZELASTINE HYDROCHLORIDE
  27. GLUCOSAMINE AND CHONDROITIN [Concomitant]
     Active Substance: CHONDROITIN SULFATE (BOVINE)\GLUCOSAMINE HYDROCHLORIDE
  28. QUERCETIN [Concomitant]
     Active Substance: QUERCETIN
  29. NORTRIPTYLINE HCL [Concomitant]
     Active Substance: NORTRIPTYLINE HYDROCHLORIDE
  30. ZANTAC [Concomitant]
     Active Substance: RANITIDINE HYDROCHLORIDE
  31. RESTASIS [Concomitant]
     Active Substance: CYCLOSPORINE
  32. DEXMETHYLPHENIDATE HYDROCHLORIDE. [Concomitant]
     Active Substance: DEXMETHYLPHENIDATE HYDROCHLORIDE
  33. PROVIGIL [Concomitant]
     Active Substance: MODAFINIL
  34. TOPAMAX [Concomitant]
     Active Substance: TOPIRAMATE
  35. BECLOMETHASONE [Concomitant]
     Active Substance: BECLOMETHASONE
  36. ALLEGRA [Concomitant]
     Active Substance: FEXOFENADINE HYDROCHLORIDE
  37. XYREM [Suspect]
     Active Substance: SODIUM OXYBATE
     Indication: CATAPLEXY
     Dosage: 2.25 G, BID
     Route: 048
     Dates: start: 201301, end: 201302
  38. AYGESTIN [Concomitant]
     Active Substance: NORETHINDRONE ACETATE
  39. FOLIC ACID. [Concomitant]
     Active Substance: FOLIC ACID
  40. XYZAL [Concomitant]
     Active Substance: LEVOCETIRIZINE DIHYDROCHLORIDE
  41. BUPROPION HCL [Concomitant]
     Active Substance: BUPROPION HYDROCHLORIDE
  42. MAXALT [Concomitant]
     Active Substance: RIZATRIPTAN BENZOATE
  43. IMITREX [Concomitant]
     Active Substance: SUMATRIPTAN SUCCINATE
  44. SKELAXIN [Concomitant]
     Active Substance: METAXALONE
  45. ALBUTEROL. [Concomitant]
     Active Substance: ALBUTEROL
  46. CRANBERRY. [Concomitant]
     Active Substance: CRANBERRY
  47. NYSTATIN W/TRIAMCINOLONE [Concomitant]
  48. SULFASALAZINE. [Concomitant]
     Active Substance: SULFASALAZINE
  49. XYREM [Suspect]
     Active Substance: SODIUM OXYBATE
     Dosage: DOSE ADJUSTMENTS
     Route: 048
     Dates: start: 201302, end: 201509
  50. PROTONIX [Concomitant]
     Active Substance: PANTOPRAZOLE SODIUM
  51. QNASL [Concomitant]
     Active Substance: BECLOMETHASONE DIPROPIONATE
  52. METROGEL [Concomitant]
     Active Substance: METRONIDAZOLE
  53. MESALAMINE. [Concomitant]
     Active Substance: MESALAMINE
  54. NEILMED SINUS RINSE [Concomitant]
     Active Substance: SODIUM BICARBONATE\SODIUM CHLORIDE
  55. TURMERIC [Concomitant]
     Active Substance: TURMERIC
  56. XYREM [Suspect]
     Active Substance: SODIUM OXYBATE
     Indication: NARCOLEPSY
     Dosage: 2.25 G, BID
     Route: 048
     Dates: start: 200702, end: 2007
  57. FLAXSEED [Concomitant]
     Active Substance: FLAX SEED
  58. METHYLCOBALAMIN. [Concomitant]
     Active Substance: METHYLCOBALAMIN
  59. AZULFIDINE [Concomitant]
     Active Substance: SULFASALAZINE
  60. LEVBID [Concomitant]
     Active Substance: HYOSCYAMINE SULFATE
  61. PROBIOTIC ACIDOPHILUS [Concomitant]
     Active Substance: LACTOBACILLUS ACIDOPHILUS
  62. ASTELIN [Concomitant]
     Active Substance: AZELASTINE HYDROCHLORIDE

REACTIONS (1)
  - Insomnia [Not Recovered/Not Resolved]
